FAERS Safety Report 11012350 (Version 1)
Quarter: 2015Q2

REPORT INFORMATION
  Report Type: Spontaneous
  Country: US (occurrence: None)
  Receive Date: 20150410
  Receipt Date: 20150410
  Transmission Date: 20150821
  Serious: Yes (Other)
  Sender: FDA-Public Use
  Company Number: None

PATIENT
  Age: 57 Year
  Sex: Male
  Weight: 80.3 kg

DRUGS (1)
  1. REVATIO [Suspect]
     Active Substance: SILDENAFIL CITRATE
     Indication: ERECTILE DYSFUNCTION
     Dosage: 2 TABLETS 30MIN BEFORE SEX  ORAL
     Route: 048
     Dates: start: 20150220

REACTIONS (3)
  - Headache [None]
  - Migraine [None]
  - Eye pain [None]

NARRATIVE: CASE EVENT DATE: 20150220
